FAERS Safety Report 18729540 (Version 1)
Quarter: 2021Q1

REPORT INFORMATION
  Report Type: Spontaneous
  Country: US (occurrence: US)
  Receive Date: 20210111
  Receipt Date: 20210111
  Transmission Date: 20210419
  Serious: Yes (Other)
  Sender: FDA-Public Use
  Company Number: None

PATIENT
  Sex: Female

DRUGS (1)
  1. LUPRON [Suspect]
     Active Substance: LEUPROLIDE ACETATE
     Indication: ENDOMETRIOSIS

REACTIONS (12)
  - Drug ineffective [None]
  - Sciatica [None]
  - Bone pain [None]
  - Pain [None]
  - Mass [None]
  - Muscle spasms [None]
  - Gait inability [None]
  - Arthralgia [None]
  - Back pain [None]
  - Post procedural complication [None]
  - Mood swings [None]
  - Haemorrhage [None]
